FAERS Safety Report 11934399 (Version 1)
Quarter: 2016Q1

REPORT INFORMATION
  Report Type: Spontaneous
  Country: US (occurrence: None)
  Receive Date: 20160120
  Receipt Date: 20160120
  Transmission Date: 20160526
  Serious: No
  Sender: FDA-Public Use
  Company Number: None

PATIENT
  Age: 64 Year
  Sex: Female

DRUGS (1)
  1. CAPECITABINE 500 MG TEVA [Suspect]
     Active Substance: CAPECITABINE
     Indication: NEOPLASM MALIGNANT
     Dosage: 2000 MG BIDX14 DAYS OFF 7 DAYS, PO
     Dates: start: 20151101, end: 20151130

REACTIONS (1)
  - Epistaxis [None]

NARRATIVE: CASE EVENT DATE: 201511
